FAERS Safety Report 5453445-5 (Version None)
Quarter: 2007Q3

REPORT INFORMATION
  Report Type: 
  Country: None (occurrence: None)
  Receive Date: 20070913
  Receipt Date: 20070831
  Transmission Date: 20080115
  Serious: Yes (Other)
  Sender: FDA-Public Use
  Company Number: 07-001812

PATIENT
  Age: 18 Year
  Sex: Female

DRUGS (1)
  1. DORYX [Suspect]
     Dosage: 75 MG

REACTIONS (4)
  - DIPLOPIA [None]
  - HEADACHE [None]
  - INTRACRANIAL PRESSURE INCREASED [None]
  - PAPILLOEDEMA [None]
